FAERS Safety Report 9326063 (Version 1)
Quarter: 2013Q2

REPORT INFORMATION
  Report Type: Spontaneous
  Country: US (occurrence: None)
  Receive Date: 20130603
  Receipt Date: 20130603
  Transmission Date: 20140414
  Serious: Yes (Other)
  Sender: FDA-Public Use
  Company Number: None

PATIENT
  Age: 43 Year
  Sex: 0
  Weight: 88.45 kg

DRUGS (2)
  1. RISPERIDONE [Suspect]
     Indication: BIPOLAR DISORDER
     Dosage: ONCE A DAY
     Route: 048
     Dates: start: 19990101, end: 20130101
  2. RISPERIDONE [Suspect]
     Indication: AFFECTIVE DISORDER
     Dosage: ONCE A DAY
     Route: 048
     Dates: start: 19990101, end: 20130101

REACTIONS (2)
  - Tremor [None]
  - Dystonia [None]
